FAERS Safety Report 19563424 (Version 1)
Quarter: 2021Q3

REPORT INFORMATION
  Report Type: Report from Study
  Country: None (occurrence: CA)
  Receive Date: 20210716
  Receipt Date: 20210716
  Transmission Date: 20211014
  Serious: Yes (Other)
  Sender: FDA-Public Use
  Company Number: CA-ABBVIE-21K-028-3990498-00

PATIENT
  Age: 30 Year
  Sex: Female

DRUGS (1)
  1. HUMIRA [Suspect]
     Active Substance: ADALIMUMAB
     Indication: CROHN^S DISEASE
     Route: 058
     Dates: start: 20140521

REACTIONS (7)
  - White blood cell count increased [Unknown]
  - Fistula [Unknown]
  - Haemoglobin abnormal [Unknown]
  - Anal stenosis [Unknown]
  - Rectal abscess [Recovered/Resolved]
  - C-reactive protein abnormal [Unknown]
  - Rectal abscess [Unknown]

NARRATIVE: CASE EVENT DATE: 201805
